FAERS Safety Report 8943662 (Version 1)
Quarter: 2012Q4

REPORT INFORMATION
  Report Type: 
  Country: US (occurrence: US)
  Receive Date: 20121204
  Receipt Date: 20121204
  Transmission Date: 20130627
  Serious: Yes (Other)
  Sender: FDA-Public Use
  Company Number: US-BAYER-2012-124231

PATIENT
  Age: 21 Year
  Sex: Female

DRUGS (1)
  1. MIRENA [Suspect]
     Indication: ENDOMETRIOSIS
     Dosage: 20 mcg/24hr, CONT
     Route: 015
     Dates: start: 2012

REACTIONS (4)
  - Genital haemorrhage [None]
  - Pain [None]
  - Device dislocation [None]
  - Off label use [None]
